FAERS Safety Report 24138371 (Version 1)
Quarter: 2024Q3

REPORT INFORMATION
  Report Type: Spontaneous
  Country: GB (occurrence: GB)
  Receive Date: 20240725
  Receipt Date: 20240725
  Transmission Date: 20241017
  Serious: Yes (Other)
  Sender: MYLAN
  Company Number: None

PATIENT
  Age: 36 Year
  Sex: Female
  Weight: 73 kg

DRUGS (11)
  1. CIPROFLOXACIN [Suspect]
     Active Substance: CIPROFLOXACIN
     Indication: Renal abscess
     Dosage: 500 MILLIGRAM, BID
     Route: 048
     Dates: start: 20240703, end: 20240709
  2. LOSARTAN [Concomitant]
     Active Substance: LOSARTAN
     Indication: Hypertension
     Dosage: 50 MILLIGRAM, QD (ONCE DAILY)
     Route: 048
     Dates: start: 20230320
  3. LOSARTAN [Concomitant]
     Active Substance: LOSARTAN
     Dosage: UNK
  4. ALFACALCIDOL [Concomitant]
     Active Substance: ALFACALCIDOL
     Indication: Hyperparathyroidism
     Dosage: 0.25 DOSAGE FORM (THREE TIMES A WEEK)
     Route: 065
     Dates: start: 20230320
  5. GENTAMICIN [Concomitant]
     Active Substance: GENTAMICIN
     Indication: Pyelonephritis
     Dosage: UNK
     Route: 065
     Dates: start: 20240520, end: 20240526
  6. AMOXICILLIN\CLAVULANATE POTASSIUM [Concomitant]
     Active Substance: AMOXICILLIN\CLAVULANATE POTASSIUM
     Indication: Pyelonephritis
     Dosage: UNK
     Route: 065
     Dates: start: 20240527, end: 20240602
  7. PIPERACILLIN SODIUM\TAZOBACTAM SODIUM [Concomitant]
     Active Substance: PIPERACILLIN SODIUM\TAZOBACTAM SODIUM
     Indication: Renal abscess
     Dosage: UNK
     Route: 065
     Dates: start: 20240603, end: 20240611
  8. CEFTRIAXONE [Concomitant]
     Active Substance: CEFTRIAXONE\CEFTRIAXONE SODIUM
     Dosage: UNK
     Route: 065
     Dates: start: 20240612, end: 20240702
  9. ACETAMINOPHEN [Concomitant]
     Active Substance: ACETAMINOPHEN
     Indication: Pain
     Dosage: UNK
     Route: 065
     Dates: start: 20240520
  10. CODEINE [Concomitant]
     Active Substance: CODEINE
     Dosage: UNK
     Route: 065
     Dates: start: 20240521
  11. MORPHINE SULFATE [Concomitant]
     Active Substance: MORPHINE SULFATE
     Indication: Pain
     Dosage: UNK
     Route: 065
     Dates: start: 20240523

REACTIONS (9)
  - Anosmia [Not Recovered/Not Resolved]
  - Brain fog [Recovering/Resolving]
  - Tearfulness [Recovered/Resolved]
  - Memory impairment [Recovered/Resolved]
  - Ageusia [Recovering/Resolving]
  - Tinnitus [Recovered/Resolved with Sequelae]
  - Depressed mood [Recovered/Resolved]
  - Nightmare [Recovered/Resolved]
  - Hallucination, auditory [Recovered/Resolved]

NARRATIVE: CASE EVENT DATE: 20240703
